FAERS Safety Report 5145705-2 (Version None)
Quarter: 2006Q4

REPORT INFORMATION
  Report Type: 
  Country: None (occurrence: None)
  Receive Date: 20060906
  Receipt Date: 20051020
  Transmission Date: 20070319
  Serious: Yes (Other)
  Sender: FDA-Public Use
  Company Number: WAES 0510USA08401

PATIENT
  Age: 30 Year
  Sex: Female

DRUGS (1)
  1. MAXALT [Suspect]
     Dosage: PRN/PO
     Route: 048

REACTIONS (1)
  - CEREBROVASCULAR ACCIDENT [None]
